FAERS Safety Report 9027969 (Version 8)
Quarter: 2014Q3

REPORT INFORMATION
  Report Type: Spontaneous
  Country: US (occurrence: None)
  Receive Date: 20120831
  Receipt Date: 20140729
  Transmission Date: 20150326
  Serious: Yes (Hospitalization, Disabling, Other)
  Sender: FDA-Public Use
  Company Number: ADR-2012-01299

PATIENT
  Age: 47 Year
  Sex: Male

DRUGS (3)
  1. LIORESAL [Suspect]
     Active Substance: BACLOFEN
     Indication: MUSCLE SPASTICITY
  2. LIORESAL [Suspect]
     Active Substance: BACLOFEN
     Indication: MULTIPLE SCLEROSIS
  3. COMPOUNDED BACLOFEN INTRATHECAL [Suspect]
     Active Substance: BACLOFEN
     Indication: MUSCLE SPASTICITY

REACTIONS (13)
  - Muscle contractions involuntary [None]
  - Rebound effect [None]
  - Muscle spasms [None]
  - Inflammatory marker increased [None]
  - Cellulitis [None]
  - Feeling abnormal [None]
  - Muscle spasticity [None]
  - Implant site extravasation [None]
  - Drug ineffective [None]
  - Urinary tract infection [None]
  - Drug withdrawal syndrome [None]
  - Device breakage [None]
  - Clonus [None]

NARRATIVE: CASE EVENT DATE: 20120706
